FAERS Safety Report 4470429-4 (Version None)
Quarter: 2004Q3

REPORT INFORMATION
  Report Type: 
  Country: None (occurrence: None)
  Receive Date: 20040909
  Receipt Date: 20040609
  Transmission Date: 20050211
  Serious: Yes (Disabling)
  Sender: FDA-Public Use
  Company Number: A03200401902

PATIENT
  Age: 49 Year
  Sex: Female
  Weight: 73 kg

DRUGS (8)
  1. ELOXATIN [Suspect]
     Indication: COLON CANCER METASTATIC
     Dosage: 160 MG Q2W  - INTRVENOUS NOS
     Route: 042
     Dates: start: 20040518, end: 20040518
  2. FLUOROURACIL - SOLUTION - 1140 MG [Suspect]
     Indication: COLON CANCER METASTATIC
     Dosage: 760 MG BOLUS AND 1140 MG X 44 HOURS  - INTRAVNEOUS NOS
     Route: 042
     Dates: start: 20040518, end: 20040520
  3. EPOGEN [Concomitant]
  4. FILGRASTIM [Concomitant]
  5. SERTRALINE HYDROCHLORIDE [Concomitant]
  6. POTASSIUM CHLORIDE [Concomitant]
  7. MAGNESIUM [Concomitant]
  8. WARFARIN SODIUM [Concomitant]

REACTIONS (8)
  - ASTHENIA [None]
  - ATAXIA [None]
  - DIARRHOEA [None]
  - FALL [None]
  - HYPOKALAEMIA [None]
  - NEUROPATHY PERIPHERAL [None]
  - NEUTROPENIC SEPSIS [None]
  - PERFORMANCE STATUS DECREASED [None]
